FAERS Safety Report 6134291-6 (Version None)
Quarter: 2009Q1

REPORT INFORMATION
  Report Type: 
  Country: None (occurrence: None)
  Receive Date: 20090325
  Receipt Date: 20090316
  Transmission Date: 20090719
  Serious: Yes (Hospitalization)
  Sender: FDA-Public Use
  Company Number: 230151K09BRA

PATIENT
  Age: 23 Year
  Sex: Male

DRUGS (1)
  1. REBIF [Suspect]
     Dosage: 22 MCG, 6 IN 1 WEEKS
     Dates: start: 20081020

REACTIONS (2)
  - HEMIPLEGIA [None]
  - SUICIDE ATTEMPT [None]
